FAERS Safety Report 18097644 (Version 1)
Quarter: 2020Q3

REPORT INFORMATION
  Report Type: Report from Study
  Country: US (occurrence: US)
  Receive Date: 20200731
  Receipt Date: 20200731
  Transmission Date: 20201103
  Serious: Yes (Other)
  Sender: FDA-Public Use
  Company Number: US-MYLANLABS-2020M1067967

PATIENT
  Age: 50 Year
  Sex: Male

DRUGS (3)
  1. TACROLIMUS. [Suspect]
     Active Substance: TACROLIMUS
     Indication: IMMUNOSUPPRESSANT DRUG THERAPY
     Dosage: SERUM TROUGH CONCENTRATION OF 9.7 NG/ ML
     Route: 065
  2. LEDIPASVIR W/SOFOSBUVIR [Suspect]
     Active Substance: LEDIPASVIR\SOFOSBUVIR
     Indication: HEPATITIS C
     Route: 065
  3. MYCOPHENOLATE MOFETIL. [Suspect]
     Active Substance: MYCOPHENOLATE MOFETIL
     Indication: IMMUNOSUPPRESSANT DRUG THERAPY
     Dosage: 180 MILLIGRAM, BID
     Route: 065

REACTIONS (6)
  - Chronic hepatitis C [Recovered/Resolved]
  - Hepatic fibrosis [Recovering/Resolving]
  - Weight increased [Recovering/Resolving]
  - Immune reconstitution inflammatory syndrome [Recovering/Resolving]
  - Hepatic function abnormal [Recovering/Resolving]
  - Steatohepatitis [Recovering/Resolving]
